FAERS Safety Report 20994391 (Version 1)
Quarter: 2022Q2

REPORT INFORMATION
  Report Type: Spontaneous
  Country: GB (occurrence: GB)
  Receive Date: 20220622
  Receipt Date: 20220622
  Transmission Date: 20220721
  Serious: Yes (Hospitalization, Disabling, Other)
  Sender: FDA-Public Use
  Company Number: GB-MHRA-MED-202206131220111270-DQWSB

PATIENT
  Age: 11 Year
  Sex: Female
  Weight: 34 kg

DRUGS (14)
  1. MOXIFLOXACIN [Suspect]
     Active Substance: MOXIFLOXACIN
     Indication: Infection
     Dosage: 300 MG, QD
     Dates: start: 20220301, end: 20220603
  2. CLOFAZIMINE [Suspect]
     Active Substance: CLOFAZIMINE
     Indication: Infection
  3. IVACAFTOR [Suspect]
     Active Substance: IVACAFTOR
     Indication: Cystic fibrosis
     Dosage: 150 MG, QD
  4. ELEXACAFTOR\IVACAFTOR\TEZACAFTOR [Suspect]
     Active Substance: ELEXACAFTOR\IVACAFTOR\TEZACAFTOR
     Indication: Cystic fibrosis
     Dosage: 2 DF, QD
  5. POSACONAZOLE [Suspect]
     Active Substance: POSACONAZOLE
     Indication: Infection
     Dates: start: 20220301, end: 20220603
  6. CREON [Concomitant]
     Active Substance: PANCRELIPASE AMYLASE\PANCRELIPASE LIPASE\PANCRELIPASE PROTEASE
  7. CYCLIZINE [Concomitant]
     Active Substance: CYCLIZINE
  8. DOMPERIDONE [Concomitant]
     Active Substance: DOMPERIDONE
  9. FEXOFENADINE [Concomitant]
     Active Substance: FEXOFENADINE HYDROCHLORIDE
  10. LANSOPRAZOLE [Concomitant]
     Active Substance: LANSOPRAZOLE
  11. MONTELUKAST [Concomitant]
     Active Substance: MONTELUKAST SODIUM
  12. ONDANSETRON [Concomitant]
     Active Substance: ONDANSETRON
  13. SERETIDE [Concomitant]
     Active Substance: FLUTICASONE PROPIONATE\SALMETEROL XINAFOATE
  14. URSODIOL [Concomitant]
     Active Substance: URSODIOL

REACTIONS (7)
  - Lethargy [Recovered/Resolved]
  - Headache [Recovered/Resolved]
  - Nausea [Recovered/Resolved]
  - Tremor [Recovered/Resolved]
  - Dizziness [Recovered/Resolved]
  - Lip blister [Recovered/Resolved]
  - Skin atrophy [Recovered/Resolved]

NARRATIVE: CASE EVENT DATE: 20220301
